FAERS Safety Report 20574998 (Version 1)
Quarter: 2022Q1

REPORT INFORMATION
  Report Type: Spontaneous
  Country: PT (occurrence: PT)
  Receive Date: 20220310
  Receipt Date: 20220310
  Transmission Date: 20220423
  Serious: Yes (Other)
  Sender: FDA-Public Use
  Company Number: PT-AMGEN-PRTSP2022039528

PATIENT

DRUGS (1)
  1. BEVACIZUMAB [Suspect]
     Active Substance: BEVACIZUMAB
     Indication: Chorioretinopathy
     Dosage: UNK
     Route: 065

REACTIONS (4)
  - Subretinal fluid [Unknown]
  - Retinal oedema [Unknown]
  - Therapy partial responder [Unknown]
  - Off label use [Unknown]
